FAERS Safety Report 13398212 (Version 3)
Quarter: 2017Q2

REPORT INFORMATION
  Report Type: Spontaneous
  Country: US (occurrence: US)
  Receive Date: 20170403
  Receipt Date: 20170509
  Transmission Date: 20170830
  Serious: Yes (Other)
  Sender: FDA-Public Use
  Company Number: US-BAUSCH-BL-2017-008283

PATIENT
  Sex: Male
  Weight: 81 kg

DRUGS (1)
  1. XIFAXAN [Suspect]
     Active Substance: RIFAXIMIN
     Indication: PRODUCT USED FOR UNKNOWN INDICATION
     Route: 065
     Dates: end: 20170316

REACTIONS (3)
  - Chronic hepatic failure [Unknown]
  - Hepatic cirrhosis [Unknown]
  - Renal disorder [Unknown]
